FAERS Safety Report 23697032 (Version 1)
Quarter: 2024Q2

REPORT INFORMATION
  Report Type: Report from Study
  Country: AZ (occurrence: AZ)
  Receive Date: 20240402
  Receipt Date: 20240402
  Transmission Date: 20240715
  Serious: Yes (Other)
  Sender: FDA-Public Use
  Company Number: AZ-JNJFOC-20240403605

PATIENT

DRUGS (1)
  1. TOPAMAX [Suspect]
     Active Substance: TOPIRAMATE
     Indication: Epilepsy
     Route: 064

REACTIONS (6)
  - Hypoxia [Unknown]
  - Asphyxia [Unknown]
  - Hypoxic-ischaemic encephalopathy [Unknown]
  - Premature baby [Unknown]
  - Low birth weight baby [Unknown]
  - Foetal exposure during pregnancy [Recovered/Resolved]
